FAERS Safety Report 8315241-0 (Version None)
Quarter: 2012Q2

REPORT INFORMATION
  Report Type: 
  Country: None (occurrence: None)
  Receive Date: 20120426
  Receipt Date: 20120416
  Transmission Date: 20120825
  Serious: Yes (Other)
  Sender: FDA-Public Use
  Company Number: JP-VERTEX PHARMACEUTICALS INC.-AE-2012-005675

PATIENT
  Age: 54 Year
  Sex: Female

DRUGS (9)
  1. JANUVIA [Concomitant]
     Route: 048
  2. RIBAVIRIN [Concomitant]
     Indication: HEPATITIS C
     Route: 048
     Dates: start: 20120215, end: 20120228
  3. PEGINTERFERON ALFA-2B [Concomitant]
     Indication: HEPATITIS C
     Route: 051
     Dates: start: 20120215
  4. URSO 250 [Concomitant]
     Route: 048
  5. RIBAVIRIN [Concomitant]
     Route: 048
     Dates: start: 20120229
  6. LOXONIN [Concomitant]
     Route: 048
     Dates: start: 20120215
  7. OMEPRAZOLE [Concomitant]
     Route: 048
  8. TELAVIC (TELAPREVIR) [Suspect]
     Indication: HEPATITIS C
     Route: 048
     Dates: start: 20120215, end: 20120221
  9. TELAVIC (TELAPREVIR) [Suspect]
     Route: 048
     Dates: start: 20120222

REACTIONS (2)
  - DECREASED APPETITE [None]
  - NAUSEA [None]
